FAERS Safety Report 18806304 (Version 1)
Quarter: 2021Q1

REPORT INFORMATION
  Report Type: Spontaneous
  Country: US (occurrence: US)
  Receive Date: 20210128
  Receipt Date: 20210128
  Transmission Date: 20210419
  Serious: Yes (Hospitalization)
  Sender: FDA-Public Use
  Company Number: None

PATIENT
  Sex: Male

DRUGS (1)
  1. MAVYRET [Suspect]
     Active Substance: GLECAPREVIR\PIBRENTASVIR
     Indication: CHRONIC HEPATITIS C
     Dosage: OTHER DOSE:300MG/120MG;?
     Route: 048
     Dates: start: 20201203

REACTIONS (4)
  - Chest pain [None]
  - Abdominal pain [None]
  - Pneumonia [None]
  - Hepatomegaly [None]
